FAERS Safety Report 19605723 (Version 1)
Quarter: 2021Q3

REPORT INFORMATION
  Report Type: Spontaneous
  Country: US (occurrence: US)
  Receive Date: 20210723
  Receipt Date: 20210723
  Transmission Date: 20211014
  Serious: Yes (Other)
  Sender: FDA-Public Use
  Company Number: US-ENDO PHARMACEUTICALS INC-2021-006105

PATIENT
  Age: 73 Year
  Sex: Male

DRUGS (2)
  1. RANITIDINE. [Suspect]
     Active Substance: RANITIDINE
     Indication: GASTRIC DISORDER
     Dosage: 300 MG, DAILY
     Route: 065
     Dates: start: 200503, end: 202002
  2. RANITIDINE HYDROCHLORIDE. [Suspect]
     Active Substance: RANITIDINE HYDROCHLORIDE
     Indication: GASTRIC DISORDER
     Dosage: 300 MG, DAILY
     Route: 065
     Dates: start: 200503, end: 202002

REACTIONS (2)
  - Lung carcinoma cell type unspecified stage II [Recovering/Resolving]
  - Bladder cancer stage III [Recovering/Resolving]

NARRATIVE: CASE EVENT DATE: 20180101
